FAERS Safety Report 8344160-9 (Version None)
Quarter: 2012Q2

REPORT INFORMATION
  Report Type: 
  Country: None (occurrence: None)
  Receive Date: 20120508
  Receipt Date: 20111118
  Transmission Date: 20120825
  Serious: Yes (Hospitalization, Other)
  Sender: FDA-Public Use
  Company Number: US-BAYER-2011-053038

PATIENT
  Age: 22 Year
  Sex: Female
  Weight: 102.95 kg

DRUGS (13)
  1. YASMIN [Suspect]
     Indication: POLYCYSTIC OVARIES
  2. LOMOTIL [DIPHENOXYLATE HYDROCHLORIDE] [Concomitant]
  3. WELLBUTRIN [Concomitant]
  4. YAZ [Suspect]
     Indication: POLYCYSTIC OVARIES
  5. ANTIEMETICS AND ANTINAUSEANTS [Concomitant]
  6. YASMIN [Suspect]
     Indication: MENSTRUATION IRREGULAR
     Dosage: UNK
     Route: 048
     Dates: start: 20050801, end: 20060301
  7. YAZ [Suspect]
     Indication: MENSTRUATION IRREGULAR
     Dosage: UNK
     Route: 048
     Dates: start: 20061101, end: 20090601
  8. ALBUTEROL [Concomitant]
     Dosage: 2 PUFF(S), Q4HR
     Route: 055
  9. WELLBUTRIN SR [Concomitant]
  10. PROTONIX [Concomitant]
     Route: 048
  11. AUGMENTIN [Concomitant]
     Dosage: 875 MG, BID
     Route: 048
  12. OPIOIDS [Concomitant]
  13. ATIVAN [Concomitant]

REACTIONS (8)
  - CHOLELITHIASIS [None]
  - DEPRESSION [None]
  - GALLBLADDER DISORDER [None]
  - DENTAL CARIES [None]
  - INJURY [None]
  - VOMITING [None]
  - CHOLECYSTITIS CHRONIC [None]
  - EMOTIONAL DISTRESS [None]
